FAERS Safety Report 9063159 (Version 2)
Quarter: 2013Q1

REPORT INFORMATION
  Report Type: Spontaneous
  Country: MX (occurrence: MX)
  Receive Date: 20130213
  Receipt Date: 20130226
  Transmission Date: 20140127
  Serious: Yes (Hospitalization, Other)
  Sender: FDA-Public Use
  Company Number: MX-BRISTOL-MYERS SQUIBB COMPANY-17366451

PATIENT
  Age: 37 Year
  Sex: Female
  Weight: 93 kg

DRUGS (9)
  1. METFORMIN HCL [Suspect]
     Indication: DIABETES MELLITUS
     Dosage: 16NOV2011 TO UNKNOWN
     Route: 048
     Dates: start: 20100714
  2. ETHINYLESTRADIOL [Concomitant]
     Route: 048
     Dates: start: 201002, end: 20111104
  3. ALLOPURINOL [Concomitant]
     Route: 048
     Dates: start: 20100813, end: 20111104
  4. FOLIC ACID [Concomitant]
     Route: 048
     Dates: start: 20100922
  5. HYOSCINE BUTYLBROMIDE [Concomitant]
     Route: 048
     Dates: start: 201001
  6. CIPROFIBRATE [Concomitant]
     Route: 048
     Dates: start: 20101122, end: 20111104
  7. DROSPIRENONE [Concomitant]
     Route: 048
     Dates: start: 20100907, end: 20111104
  8. OMEGA 3 FISH OIL [Concomitant]
     Route: 048
     Dates: start: 20110211
  9. BETAHISTINE [Concomitant]
     Route: 048
     Dates: start: 20111005, end: 20111104

REACTIONS (4)
  - Abortion [Recovered/Resolved with Sequelae]
  - Metabolic disorder [Recovered/Resolved]
  - Abortion threatened [Recovered/Resolved]
  - Pregnancy [Recovered/Resolved]
